FAERS Safety Report 5747905-7 (Version None)
Quarter: 2008Q2

REPORT INFORMATION
  Report Type: 
  Country: None (occurrence: None)
  Receive Date: 20080523
  Receipt Date: 20080521
  Transmission Date: 20081010
  Serious: Yes (Other)
  Sender: FDA-Public Use
  Company Number: US-GENENTECH-257623

PATIENT
  Sex: Male

DRUGS (10)
  1. RAPTIVA [Suspect]
     Indication: PSORIASIS
     Dosage: 110 MG, 1/WEEK
     Route: 058
     Dates: start: 20080201
  2. DIOVAN [Concomitant]
     Indication: DRUG USE FOR UNKNOWN INDICATION
  3. CRESTOR [Concomitant]
     Indication: DRUG USE FOR UNKNOWN INDICATION
  4. VIAGRA [Concomitant]
     Indication: DRUG USE FOR UNKNOWN INDICATION
  5. ATENOLOL [Concomitant]
     Indication: DRUG USE FOR UNKNOWN INDICATION
  6. TRICOR [Concomitant]
     Indication: DRUG USE FOR UNKNOWN INDICATION
  7. EFFEXOR [Concomitant]
     Indication: DRUG USE FOR UNKNOWN INDICATION
  8. NITROSTAT [Concomitant]
     Indication: DRUG USE FOR UNKNOWN INDICATION
  9. VITAMIN [Concomitant]
     Indication: DRUG USE FOR UNKNOWN INDICATION
  10. ASPIRIN [Concomitant]
     Indication: DRUG USE FOR UNKNOWN INDICATION

REACTIONS (1)
  - LEUKOCYTOCLASTIC VASCULITIS [None]
